FAERS Safety Report 10262813 (Version 2)
Quarter: 2014Q2

REPORT INFORMATION
  Report Type: Report from Study
  Country: US (occurrence: US)
  Receive Date: 20140626
  Receipt Date: 20140626
  Transmission Date: 20141212
  Serious: Yes (Other)
  Sender: FDA-Public Use
  Company Number: US-MYLANLABS-2013S1017501

PATIENT
  Age: 42 Year
  Sex: Female

DRUGS (11)
  1. CLOZAPINE TABLETS [Suspect]
     Route: 048
     Dates: start: 20130222, end: 2013
  2. MEDROL [Concomitant]
     Dosage: DOSE PACK
  3. PERMETHRIN [Concomitant]
  4. DOCUSATE [Concomitant]
  5. FENOFIBRATE [Concomitant]
  6. METFORMIN ER [Concomitant]
  7. BISOPROLOL [Concomitant]
  8. VITAMIN D [Concomitant]
  9. MIRTAZAPINE [Concomitant]
  10. DIVALPROEX [Concomitant]
  11. BENZTROPINE [Concomitant]

REACTIONS (1)
  - Granulocytopenia [Not Recovered/Not Resolved]
